FAERS Safety Report 5232161-9 (Version None)
Quarter: 2007Q1

REPORT INFORMATION
  Report Type: 
  Country: None (occurrence: None)
  Receive Date: 20061205
  Receipt Date: 20060907
  Transmission Date: 20070707
  Serious: No
  Sender: FDA-Public Use
  Company Number: PHEH2006US11424

PATIENT
  Sex: Female

DRUGS (1)
  1. EXJADE [Suspect]
     Indication: IRON OVERLOAD
     Dosage: ORAL
     Route: 048

REACTIONS (2)
  - RETICULOCYTE COUNT INCREASED [None]
  - THERAPEUTIC RESPONSE UNEXPECTED [None]
